FAERS Safety Report 6928835-1 (Version None)
Quarter: 2010Q3

REPORT INFORMATION
  Report Type: 
  Country: None (occurrence: None)
  Receive Date: 20100806
  Receipt Date: 20090627
  Transmission Date: 20110219
  Serious: No
  Sender: FDA-Public Use
  Company Number: 2009-00233

PATIENT
  Age: 49 Year
  Sex: Female
  Weight: 65.7716 kg

DRUGS (3)
  1. ZICAM COLD REMEDY NASAL GEL [Suspect]
     Dosage: WINTER 2008-2009
     Dates: start: 20080101, end: 20090101
  2. ALLEGRA [Concomitant]
  3. FLUTICASONE NASAL SPRAY [Concomitant]

REACTIONS (2)
  - AGEUSIA [None]
  - ANOSMIA [None]
